FAERS Safety Report 17249969 (Version 6)
Quarter: 2020Q4

REPORT INFORMATION
  Report Type: Spontaneous
  Country: JP (occurrence: JP)
  Receive Date: 20200109
  Receipt Date: 20201020
  Transmission Date: 20210113
  Serious: Yes (Hospitalization, Other)
  Sender: FDA-Public Use
  Company Number: JP-UCBSA-2020000856

PATIENT
  Age: 78 Year
  Sex: Male
  Weight: 54 kg

DRUGS (11)
  1. BEVACIZUMAB. [Concomitant]
     Active Substance: BEVACIZUMAB
     Indication: PRODUCT USED FOR UNKNOWN INDICATION
     Dosage: UNK
  2. AVASTIN [ATORVASTATIN CALCIUM] [Concomitant]
     Active Substance: ATORVASTATIN CALCIUM
     Indication: RECTAL CANCER
     Dosage: 278 MILLIGRAM, ONCE DAILY (QD)
     Route: 041
     Dates: start: 20191217, end: 20191217
  3. ISOSORBIDE. [Concomitant]
     Active Substance: ISOSORBIDE
     Indication: BRAIN CANCER METASTATIC
     Dosage: UNK, 3X/DAY (TID)
     Route: 048
  4. VIMPAT [Suspect]
     Active Substance: LACOSAMIDE
     Indication: PARTIAL SEIZURES
     Dosage: 50 MILLIGRAM, 2X/DAY (BID)
     Route: 048
     Dates: start: 20191007, end: 20191227
  5. VIMPAT [Suspect]
     Active Substance: LACOSAMIDE
     Indication: EPILEPSY
  6. LEVOFOLINATE [CALCIUM LEVOFOLINATE] [Concomitant]
     Active Substance: LEVOLEUCOVORIN CALCIUM
     Indication: RECTAL CANCER
     Dosage: 318 MILLIGRAM, ONCE DAILY (QD)
     Route: 041
     Dates: start: 20191217, end: 20191217
  7. RINDERON [BETAMETHASONE] [Concomitant]
     Active Substance: BETAMETHASONE
     Indication: BRAIN CANCER METASTATIC
     Dosage: 1 MILLIGRAM, 2X/DAY (BID)
     Route: 048
  8. BIOFERMIN [LACTOMIN] [Concomitant]
     Active Substance: DIETARY SUPPLEMENT\PROBIOTICS
     Indication: DIARRHOEA
     Dosage: UNK, 3X/DAY (TID)
     Route: 048
  9. TAKECAB [Concomitant]
     Active Substance: VONOPRAZAN FUMARATE
     Indication: GASTROOESOPHAGEAL REFLUX DISEASE
     Dosage: 10 MILLIGRAM, ONCE DAILY (QD)
     Route: 048
  10. IRINOTECAN HYDROCHLORIDE. [Concomitant]
     Active Substance: IRINOTECAN HYDROCHLORIDE
     Indication: RECTAL CANCER
     Dosage: 238 MILLIGRAM, ONCE DAILY (QD)
     Route: 041
     Dates: start: 20191217, end: 20191217
  11. 5-FU [FLUOROURACIL] [Concomitant]
     Active Substance: FLUOROURACIL
     Indication: RECTAL CANCER
     Dosage: UNK, ONCE DAILY (QD)
     Route: 041
     Dates: start: 20191217, end: 20191217

REACTIONS (4)
  - Thrombocytopenia [Recovered/Resolved]
  - Vomiting [Recovered/Resolved]
  - Diarrhoea [Recovered/Resolved]
  - Agranulocytosis [Unknown]

NARRATIVE: CASE EVENT DATE: 20191219
